FAERS Safety Report 9409942 (Version 3)
Quarter: 2013Q3

REPORT INFORMATION
  Report Type: Spontaneous
  Country: JP (occurrence: JP)
  Receive Date: 20130719
  Receipt Date: 20130917
  Transmission Date: 20140515
  Serious: Yes (Hospitalization, Other)
  Sender: FDA-Public Use
  Company Number: JP-009507513-1307JPN008200

PATIENT
  Age: 88 Year
  Sex: Female
  Weight: 59 kg

DRUGS (21)
  1. FOSAMAC TABLETS 35MG [Suspect]
     Indication: OSTEOPOROSIS
     Dosage: 35 MG, 1 WEEK
     Route: 048
     Dates: start: 2008, end: 20120925
  2. PREDONINE [Suspect]
     Indication: POLYMYALGIA RHEUMATICA
     Dosage: DIVIDED DOSE FREQUENCY UNKONWN
     Route: 048
     Dates: start: 200802, end: 201108
  3. CELECOX [Concomitant]
     Indication: POLYMYALGIA RHEUMATICA
     Dosage: 100 MG, BID
     Route: 048
     Dates: start: 200802, end: 201209
  4. FERROMIA [Concomitant]
     Indication: ANAEMIA
     Dosage: DIVIDED DOSE FREQUENCY UNKNOWN FORMULATION POR
     Route: 048
     Dates: start: 2008
  5. GASOAL [Concomitant]
     Dosage: DAILY DOSAGE UNKNOWN
     Route: 048
  6. DIOVAN [Concomitant]
     Dosage: DAILY DOSAGE UNKNOWN
     Route: 048
  7. ADALAT CR [Concomitant]
     Dosage: FORMULATION: STR, DAILY DOSAGE UNKNOWN
     Route: 048
  8. LOCHOL (FLUVASTATIN SODIUM) [Concomitant]
     Dosage: DAILY DOSAGE UNKNOWN
     Route: 048
  9. MARZULENE-S [Concomitant]
     Dosage: DAILY DOSAGE UNKNOWN
     Route: 048
  10. FAMOTIDINE [Concomitant]
     Dosage: DAILY DOSAGE UNKNOWN
     Route: 048
  11. TEFMETIN [Concomitant]
     Dosage: FORMULATION FGR, DAILY DOSAGE UNKNOWN
     Route: 048
  12. CONCZYME N [Concomitant]
     Dosage: DAILY DOSAGE UNKNOWN
     Route: 048
  13. ALOSENN (SENNA) [Concomitant]
     Dosage: DAILY DOSAGE UNKNOWN
     Route: 048
  14. AVAPRO [Concomitant]
     Dosage: DAILY DOSAGE UNKNOWN
     Route: 048
  15. AMLODIPINE BESYLATE [Concomitant]
     Dosage: DAILY DOSAGE UNKNOWN
     Route: 048
  16. CARNACULIN [Concomitant]
     Dosage: DAILY DOSAGE UNKNOWN
     Route: 048
  17. GLAKAY [Concomitant]
     Indication: OSTEOPOROSIS
     Dosage: 15 MG, TID
     Route: 048
     Dates: start: 200802, end: 201209
  18. BAYASPIRIN [Concomitant]
     Dosage: DAILY DOSAGE UNKNOWN
     Route: 048
  19. LIPOBLOCK [Concomitant]
     Dosage: DAILY DOSAGE UNKNOWN
     Route: 048
  20. HYALEIN [Concomitant]
     Dosage: FORMULATION: EED, DAILY DOSAGE UNKNOWN
     Route: 047
  21. TRAVATANZ [Concomitant]
     Dosage: FORMULATION EED, DAILY DOSAGE UNKNOWN
     Route: 047

REACTIONS (2)
  - Femur fracture [Recovering/Resolving]
  - Surgery [Recovering/Resolving]
